FAERS Safety Report 15517524 (Version 1)
Quarter: 2018Q4

REPORT INFORMATION
  Report Type: Spontaneous
  Country: US (occurrence: US)
  Receive Date: 20181017
  Receipt Date: 20181017
  Transmission Date: 20190205
  Serious: No
  Sender: FDA-Public Use
  Company Number: US-VERTEX PHARMACEUTICALS-2018-002604

PATIENT
  Sex: Male

DRUGS (1)
  1. KALYDECO [Suspect]
     Active Substance: IVACAFTOR
     Indication: CYSTIC FIBROSIS
     Dosage: 150 MG, BID
     Route: 048
     Dates: start: 20180309

REACTIONS (3)
  - Muscle spasms [Not Recovered/Not Resolved]
  - Blood urea increased [Not Recovered/Not Resolved]
  - Urine oxalate increased [Unknown]

NARRATIVE: CASE EVENT DATE: 2018
